FAERS Safety Report 13540817 (Version 1)
Quarter: 2017Q2

REPORT INFORMATION
  Report Type: Spontaneous
  Country: IT (occurrence: IT)
  Receive Date: 20170512
  Receipt Date: 20170512
  Transmission Date: 20170830
  Serious: Yes (Hospitalization)
  Sender: FDA-Public Use
  Company Number: IT-MUNDIPHARMA DS AND PHARMACOVIGILANCE-GBR-2017-0045122

PATIENT
  Age: 81 Year
  Sex: Female

DRUGS (11)
  1. CONGESCOR [Concomitant]
     Active Substance: BISOPROLOL
     Route: 048
  2. PANTORC [Concomitant]
     Active Substance: PANTOPRAZOLE SODIUM
     Route: 048
  3. SERTRALINE [Concomitant]
     Active Substance: SERTRALINE HYDROCHLORIDE
     Route: 048
  4. TORVAST [Concomitant]
     Active Substance: ATORVASTATIN
     Route: 048
  5. PLAVIX [Suspect]
     Active Substance: CLOPIDOGREL BISULFATE
     Indication: THROMBOSIS PROPHYLAXIS
     Dosage: 1 UNIT, DAILY
     Route: 048
     Dates: start: 20160101, end: 20170222
  6. LEVOPRAID                          /00314301/ [Concomitant]
     Active Substance: SULPIRIDE
     Route: 048
  7. TARGIN [Suspect]
     Active Substance: NALOXONE HYDROCHLORIDE\OXYCODONE HYDROCHLORIDE
     Indication: PAIN IN EXTREMITY
     Dosage: 3 UNIT, DAILY
     Route: 048
     Dates: start: 20170207, end: 20170222
  8. CALCIPARINA [Concomitant]
     Active Substance: HEPARIN CALCIUM
     Dosage: 5000 IU/0.2 ML
     Route: 058
  9. DEPALGOS [Suspect]
     Active Substance: ACETAMINOPHEN\OXYCODONE HYDROCHLORIDE
     Indication: PAIN IN EXTREMITY
     Dosage: 5 UNIT, DAILY
     Route: 048
     Dates: start: 20170207, end: 20170222
  10. LYRICA [Suspect]
     Active Substance: PREGABALIN
     Indication: PAIN IN EXTREMITY
     Dosage: 3 UNIT, DAILY
     Route: 048
     Dates: start: 20170207, end: 20170222
  11. ACETYLSALICYLIC ACID [Concomitant]
     Active Substance: ASPIRIN
     Route: 048

REACTIONS (4)
  - Nausea [Unknown]
  - Vertigo [Unknown]
  - Dyskinesia [Unknown]
  - Loss of consciousness [Unknown]

NARRATIVE: CASE EVENT DATE: 20170222
